FAERS Safety Report 20526795 (Version 1)
Quarter: 2022Q1

REPORT INFORMATION
  Report Type: Spontaneous
  Country: US (occurrence: None)
  Receive Date: 20220227
  Receipt Date: 20220227
  Transmission Date: 20220423
  Serious: Yes (Other)
  Sender: FDA-Public Use
  Company Number: None

PATIENT
  Age: 25 Year
  Sex: Female
  Weight: 63.5 kg

DRUGS (1)
  1. MIRENA [Suspect]
     Active Substance: LEVONORGESTREL

REACTIONS (8)
  - Chemical poisoning [None]
  - Alopecia [None]
  - Skin disorder [None]
  - Haemorrhage [None]
  - Paraesthesia [None]
  - Hypoaesthesia [None]
  - Seborrhoea [None]
  - Acne [None]

NARRATIVE: CASE EVENT DATE: 20190603
